FAERS Safety Report 4285318-8 (Version None)
Quarter: 2004Q1

REPORT INFORMATION
  Report Type: 
  Country: None (occurrence: None)
  Receive Date: 20040204
  Receipt Date: 20030730
  Transmission Date: 20041129
  Serious: Yes (Death, Hospitalization)
  Sender: FDA-Public Use
  Company Number: FR-BRISTOL-MYERS SQUIBB COMPANY-12342218

PATIENT
  Age: 60 Year
  Sex: Male
  Weight: 70 kg

DRUGS (9)
  1. ELISOR TABS 20 MG [Suspect]
     Route: 048
     Dates: start: 20030307, end: 20030411
  2. ZYLORIC [Suspect]
     Indication: HYPERURICAEMIA
     Route: 048
     Dates: start: 20030307, end: 20030327
  3. ALLOPURINOL [Suspect]
     Route: 048
     Dates: start: 20030327, end: 20030330
  4. ESIDRIX [Suspect]
     Route: 048
     Dates: end: 20030401
  5. CIBACENE [Suspect]
     Route: 048
     Dates: end: 20030411
  6. LASILIX [Concomitant]
     Route: 048
     Dates: end: 20030411
  7. TENORMIN [Concomitant]
  8. SOLU-MEDROL [Concomitant]
  9. INIPOMP [Concomitant]

REACTIONS (30)
  - ALANINE AMINOTRANSFERASE INCREASED [None]
  - ANAEMIA [None]
  - ANOREXIA [None]
  - ASPARTATE AMINOTRANSFERASE INCREASED [None]
  - ASTHENIA [None]
  - COAGULOPATHY [None]
  - DERMATITIS BULLOUS [None]
  - DERMATITIS EXFOLIATIVE [None]
  - DIARRHOEA [None]
  - DRUG HYPERSENSITIVITY [None]
  - EOSINOPHILIA [None]
  - HAEMODIALYSIS [None]
  - HEPATITIS [None]
  - HYPEREOSINOPHILIC SYNDROME [None]
  - HYPERKERATOSIS [None]
  - HYPERSENSITIVITY [None]
  - HYPERTHERMIA [None]
  - HYPOTENSION [None]
  - INFLAMMATION [None]
  - LIVER DISORDER [None]
  - MUSCLE DISORDER [None]
  - PYREXIA [None]
  - RASH [None]
  - RASH PRURITIC [None]
  - RENAL DISORDER [None]
  - RENAL FAILURE [None]
  - STAPHYLOCOCCAL BACTERAEMIA [None]
  - STAPHYLOCOCCAL SEPSIS [None]
  - THROMBOCYTOPENIA [None]
  - TREATMENT NONCOMPLIANCE [None]
